FAERS Safety Report 7213759-5 (Version None)
Quarter: 2011Q1

REPORT INFORMATION
  Report Type: 
  Country: None (occurrence: None)
  Receive Date: 20110106
  Receipt Date: 20101231
  Transmission Date: 20110831
  Serious: Yes (Death, Other)
  Sender: FDA-Public Use
  Company Number: US-PFIZER INC-2011000389

PATIENT
  Age: 45 Year
  Sex: Male

DRUGS (4)
  1. PROMETHAZINE [Suspect]
     Route: 065
  2. DIPHENHYDRAMINE [Suspect]
     Route: 065
  3. ALPRAZOLAM [Suspect]
     Route: 065
  4. INSULIN [Suspect]
     Route: 065

REACTIONS (3)
  - RESPIRATORY ARREST [None]
  - CARDIAC ARREST [None]
  - DEATH [None]
